FAERS Safety Report 8934318 (Version 1)
Quarter: 2012Q4

REPORT INFORMATION
  Report Type: 
  Country: ES (occurrence: ES)
  Receive Date: 20121129
  Receipt Date: 20121129
  Transmission Date: 20130627
  Serious: Yes (Hospitalization)
  Sender: FDA-Public Use
  Company Number: ES-PFIZER INC-2012294763

PATIENT
  Age: 25 Year
  Sex: Female

DRUGS (6)
  1. REVATIO [Suspect]
     Indication: PORTOPULMONARY HYPERTENSION
     Dosage: 10 mg, 3x/day
     Route: 048
     Dates: start: 201005
  2. FUROSEMIDE [Concomitant]
     Indication: CARDIAC INSUFFICIENCY
     Dosage: 40 mg, 1x/day
     Route: 048
     Dates: start: 2010
  3. ALDACTONE [Concomitant]
     Indication: CARDIAC INSUFFICIENCY
     Dosage: UNK
     Route: 048
     Dates: start: 2010
  4. EUTIROX [Concomitant]
     Indication: HYPOTHYROIDISM
     Dosage: 137 ug, 1x/day
     Route: 048
     Dates: start: 2008
  5. NEURONTIN [Concomitant]
     Indication: EPILEPSY
     Dosage: 400 mg, 3x/day
     Route: 048
     Dates: start: 1998
  6. TRILEPTAL [Concomitant]
     Indication: EPILEPSY
     Dosage: 600 mg, 2x/day
     Route: 048
     Dates: start: 2001

REACTIONS (2)
  - Chronic hepatitis [Not Recovered/Not Resolved]
  - Condition aggravated [Not Recovered/Not Resolved]
